FAERS Safety Report 9311860 (Version 1)
Quarter: 2013Q2

REPORT INFORMATION
  Report Type: Report from Study
  Country: US (occurrence: US)
  Receive Date: 20130528
  Receipt Date: 20130528
  Transmission Date: 20140414
  Serious: Yes (Other)
  Sender: FDA-Public Use
  Company Number: US-SANOFI-AVENTIS-2013SA051931

PATIENT
  Sex: Female

DRUGS (2)
  1. DOCETAXEL [Suspect]
     Indication: OVARIAN CANCER RECURRENT
     Dosage: ON DAY 1 AND 8 OF 21 DAYS CYCLE.
     Route: 065
  2. BEVACIZUMAB [Suspect]
     Indication: OVARIAN CANCER RECURRENT
     Dosage: ON DAY 1 OF 21 DAY CYCLE
     Route: 065

REACTIONS (1)
  - Enterovesical fistula [Unknown]
